FAERS Safety Report 6081171-0 (Version None)
Quarter: 2009Q1

REPORT INFORMATION
  Report Type: 
  Country: None (occurrence: None)
  Receive Date: 20090213
  Receipt Date: 20090126
  Transmission Date: 20090719
  Serious: Yes (Hospitalization, Other)
  Sender: FDA-Public Use
  Company Number: 2009S1000627

PATIENT
  Age: 20 Year
  Sex: Female

DRUGS (3)
  1. CITALOPRAM HYDROBROMIDE [Suspect]
     Indication: DRUG USE FOR UNKNOWN INDICATION
     Dosage: 2760 MG; PMCE
  2. DIAZEPAM [Concomitant]
  3. ALCOHOL [Concomitant]

REACTIONS (7)
  - ABDOMINAL PAIN [None]
  - ALCOHOL INTERACTION [None]
  - GRAND MAL CONVULSION [None]
  - HYPOGLYCAEMIA [None]
  - OVERDOSE [None]
  - PYREXIA [None]
  - SINUS TACHYCARDIA [None]
